FAERS Safety Report 5443895-5 (Version None)
Quarter: 2007Q3

REPORT INFORMATION
  Report Type: 
  Country: None (occurrence: None)
  Receive Date: 20070905
  Receipt Date: 20070821
  Transmission Date: 20080115
  Serious: No
  Sender: FDA-Public Use
  Company Number: US-BOEHRINGER INGELHEIM PHARMACEUTICALS, INC.-2007-BP-17988BP

PATIENT
  Age: 75 Year
  Sex: Male
  Weight: 81 kg

DRUGS (7)
  1. SPIRIVA [Suspect]
     Indication: PNEUMONIA
     Route: 055
     Dates: end: 20070601
  2. XOPENEX [Concomitant]
  3. ADVIL LIQUI-GELS [Concomitant]
  4. DILANTIN [Concomitant]
  5. ADVAIR DISKUS 100/50 [Concomitant]
  6. ASPIRIN [Concomitant]
  7. CLARITHROMYCIN [Concomitant]

REACTIONS (2)
  - MALAISE [None]
  - TREMOR [None]
